FAERS Safety Report 4699137-1 (Version None)
Quarter: 2005Q2

REPORT INFORMATION
  Report Type: 
  Country: None (occurrence: None)
  Receive Date: 20050623
  Receipt Date: 20050623
  Transmission Date: 20051028
  Serious: Yes (Other)
  Sender: FDA-Public Use
  Company Number: None

PATIENT
  Age: 41 Year
  Sex: Male
  Weight: 81.6475 kg

DRUGS (3)
  1. SEROQUEL [Suspect]
     Indication: SCHIZOPHRENIA, PARANOID TYPE
     Dosage: 100 MG /HS PO BUCCAL
     Route: 002
     Dates: start: 20050225, end: 20050621
  2. SEROQUEL [Suspect]
     Dosage: 50 MG/HS PO BUCCAL
     Route: 002
  3. PROZAC [Concomitant]

REACTIONS (1)
  - WEIGHT INCREASED [None]
